FAERS Safety Report 18318917 (Version 1)
Quarter: 2020Q3

REPORT INFORMATION
  Report Type: Report from Study
  Country: None (occurrence: CA)
  Receive Date: 20200928
  Receipt Date: 20200928
  Transmission Date: 20201103
  Serious: Yes (Other)
  Sender: FDA-Public Use
  Company Number: CA-ABBVIE-20K-028-3581729-00

PATIENT
  Sex: Female

DRUGS (1)
  1. RINVOQ [Suspect]
     Active Substance: UPADACITINIB
     Indication: RHEUMATOID ARTHRITIS
     Route: 048
     Dates: end: 202009

REACTIONS (8)
  - Breast cancer [Not Recovered/Not Resolved]
  - Oral infection [Unknown]
  - Urinary tract infection [Unknown]
  - Pain [Unknown]
  - Productive cough [Unknown]
  - Oral discharge [Unknown]
  - Eye discharge [Unknown]
  - Visual impairment [Unknown]
